FAERS Safety Report 20733576 (Version 1)
Quarter: 2022Q2

REPORT INFORMATION
  Report Type: Spontaneous
  Country: TR (occurrence: TR)
  Receive Date: 20220421
  Receipt Date: 20220421
  Transmission Date: 20220721
  Serious: Yes (Life-Threatening, Hospitalization, Other)
  Sender: FDA-Public Use
  Company Number: TR-SUN PHARMACEUTICAL INDUSTRIES LTD-2022R1-333789

PATIENT
  Age: 20 Year
  Sex: Female

DRUGS (1)
  1. VERAPAMIL [Suspect]
     Active Substance: VERAPAMIL HYDROCHLORIDE
     Indication: Supraventricular tachycardia
     Dosage: UNK
     Route: 065

REACTIONS (3)
  - Bradycardia [Recovered/Resolved]
  - Intentional overdose [Unknown]
  - Atrioventricular block [Recovered/Resolved]
